FAERS Safety Report 6322163-3 (Version None)
Quarter: 2009Q3

REPORT INFORMATION
  Report Type: 
  Country: None (occurrence: None)
  Receive Date: 20090824
  Receipt Date: 20090123
  Transmission Date: 20100115
  Serious: No
  Sender: FDA-Public Use
  Company Number: US-ABBOTT-09P-163-0499921-00

PATIENT
  Sex: Female

DRUGS (4)
  1. NIASPAN [Suspect]
     Indication: CAROTID ARTERY STENOSIS
     Dosage: 1000MG DAILY
     Dates: start: 20080101, end: 20081229
  2. NIASPAN [Suspect]
     Indication: ULTRASOUND SCAN ABNORMAL
  3. AVALIDE [Concomitant]
     Indication: DRUG USE FOR UNKNOWN INDICATION
  4. LYRICA [Concomitant]
     Indication: DRUG USE FOR UNKNOWN INDICATION

REACTIONS (1)
  - FLUSHING [None]
